FAERS Safety Report 6148480-8 (Version None)
Quarter: 2009Q2

REPORT INFORMATION
  Report Type: 
  Country: None (occurrence: None)
  Receive Date: 20090408
  Receipt Date: 20090327
  Transmission Date: 20091009
  Serious: Yes (Hospitalization, Other)
  Sender: FDA-Public Use
  Company Number: PHHY2009GB11295

PATIENT
  Sex: Male

DRUGS (1)
  1. CLOZARIL [Suspect]
     Indication: SCHIZOPHRENIA
     Dosage: UNK
     Dates: start: 19980717, end: 20090323

REACTIONS (4)
  - BLOOD ALKALINE PHOSPHATASE INCREASED [None]
  - FOOD POISONING [None]
  - HEPATIC FUNCTION ABNORMAL [None]
  - VOMITING [None]
